FAERS Safety Report 7911582-7 (Version None)
Quarter: 2011Q4

REPORT INFORMATION
  Report Type: 
  Country: None (occurrence: None)
  Receive Date: 20111028
  Receipt Date: 20110623
  Transmission Date: 20120403
  Serious: Yes (Other)
  Sender: FDA-Public Use
  Company Number: PHHY2011US28863

PATIENT
  Age: 65 Year
  Sex: Female

DRUGS (4)
  1. SYNTHROID [Suspect]
     Dosage: 2 DF (2 DOSES)
  2. ESTRADERM [Suspect]
     Dosage: 0.05 MG, ONCE PER WEEK, TRANSDERMAL
     Route: 062
  3. SINGULAIR [Concomitant]
  4. LACTULOSE [Concomitant]

REACTIONS (3)
  - ANAPHYLACTIC REACTION [None]
  - WRONG TECHNIQUE IN DRUG USAGE PROCESS [None]
  - APPLICATION SITE ERYTHEMA [None]
